FAERS Safety Report 22786302 (Version 3)
Quarter: 2025Q4

REPORT INFORMATION
  Report Type: Other
  Country: EU (occurrence: EU)
  Receive Date: 20230804
  Receipt Date: 20251029
  Transmission Date: 20260118
  Serious: Yes (Congenital Anomaly)
  Sender: VELOXIS PHARMACEUTICALS
  Company Number: EU-AFSSAPS-TS2023000989

PATIENT
  Sex: Male

DRUGS (6)
  1. TACROLIMUS [Suspect]
     Active Substance: TACROLIMUS
     Indication: Prophylaxis against transplant rejection
     Dosage: UNK
  2. BACTRIM [Suspect]
     Active Substance: SULFAMETHOXAZOLE\TRIMETHOPRIM
     Indication: Prophylaxis against transplant rejection
     Dosage: UNK
  3. PREDNISONE [Suspect]
     Active Substance: PREDNISONE
     Indication: Prophylaxis against transplant rejection
     Dosage: 5 MILLIGRAM, QD
  4. AZATHIOPRINE [Suspect]
     Active Substance: AZATHIOPRINE
     Indication: Prophylaxis against transplant rejection
     Dosage: 50 MILLIGRAM, QD
  5. AZITHROMYCIN [Suspect]
     Active Substance: AZITHROMYCIN
     Indication: Prophylaxis against transplant rejection
     Dosage: UNK
  6. METHIONINE [Suspect]
     Active Substance: METHIONINE
     Indication: Alveolar proteinosis
     Dosage: 1800 MG, 8 HOUR (TID)

REACTIONS (6)
  - Foetal growth restriction [Recovered/Resolved]
  - Ureteric dilatation [Recovered/Resolved]
  - Pyelocaliectasis [Recovered/Resolved]
  - Maternal exposure during pregnancy [Recovered/Resolved]
  - Leukopenia neonatal [Recovered/Resolved]
  - Neonatal respiratory distress [Recovered/Resolved]

NARRATIVE: CASE EVENT DATE: 20221116
